FAERS Safety Report 12048049 (Version 1)
Quarter: 2016Q1

REPORT INFORMATION
  Report Type: Spontaneous
  Country: US (occurrence: None)
  Receive Date: 20160208
  Receipt Date: 20160208
  Transmission Date: 20160526
  Serious: Yes (Other)
  Sender: FDA-Public Use
  Company Number: None

PATIENT
  Age: 29 Year
  Sex: Female
  Weight: 115.67 kg

DRUGS (4)
  1. COCONUT OIL [Concomitant]
     Active Substance: COCONUT OIL
  2. IRON [Concomitant]
     Active Substance: IRON
  3. ADIL [Concomitant]
  4. MICONAZOLE. [Suspect]
     Active Substance: MICONAZOLE
     Indication: FUNGAL INFECTION
     Route: 067
     Dates: start: 20160128, end: 20160203

REACTIONS (8)
  - Erythema [None]
  - Fungal infection [None]
  - Discomfort [None]
  - Swelling [None]
  - Pruritus [None]
  - Burning sensation [None]
  - Pain [None]
  - Vulval disorder [None]

NARRATIVE: CASE EVENT DATE: 20160203
